FAERS Safety Report 10565236 (Version 1)
Quarter: 2014Q4

REPORT INFORMATION
  Report Type: Spontaneous
  Country: FR (occurrence: None)
  Receive Date: 20141103
  Receipt Date: 20141103
  Transmission Date: 20150529
  Serious: Yes (Death)
  Sender: FDA-Public Use
  Company Number: 2603571

PATIENT
  Sex: Male

DRUGS (7)
  1. ETOPOSIDE. [Suspect]
     Active Substance: ETOPOSIDE
     Indication: HODGKIN^S DISEASE LYMPHOCYTE DEPLETION TYPE STAGE IV
     Dosage: CYCLICAL
  2. PROCARBAZINE [Suspect]
     Active Substance: PROCARBAZINE
     Indication: HODGKIN^S DISEASE LYMPHOCYTE DEPLETION TYPE STAGE IV
     Dosage: CYCLICAL
  3. PREDNISONE. [Suspect]
     Active Substance: PREDNISONE
     Indication: HODGKIN^S DISEASE LYMPHOCYTE DEPLETION TYPE STAGE IV
     Dosage: CYCLICAL
  4. VINCRISTINE SULFATE. [Suspect]
     Active Substance: VINCRISTINE SULFATE
     Indication: HODGKIN^S DISEASE LYMPHOCYTE DEPLETION TYPE STAGE IV
     Dosage: CYCLICAL
  5. CYCLOPHOSPHAMIDE. [Suspect]
     Active Substance: CYCLOPHOSPHAMIDE
     Indication: HODGKIN^S DISEASE LYMPHOCYTE DEPLETION TYPE STAGE IV
     Dosage: CYCLICAL
  6. BLEOMYCIN [Suspect]
     Active Substance: BLEOMYCIN SULFATE
     Indication: HODGKIN^S DISEASE LYMPHOCYTE DEPLETION TYPE STAGE IV
     Dosage: CYCLICAL
  7. DOXORUBICIN [Suspect]
     Active Substance: DOXORUBICIN
     Indication: HODGKIN^S DISEASE LYMPHOCYTE DEPLETION TYPE STAGE IV
     Dosage: CYCLICAL

REACTIONS (6)
  - Conjunctivitis [None]
  - Measles [None]
  - Acute respiratory failure [None]
  - Pneumonitis [None]
  - Neutropenia [None]
  - Oropharyngeal pain [None]
